FAERS Safety Report 24919121 (Version 2)
Quarter: 2025Q1

REPORT INFORMATION
  Report Type: Spontaneous
  Country: US (occurrence: US)
  Receive Date: 20250204
  Receipt Date: 20250306
  Transmission Date: 20250409
  Serious: Yes (Other)
  Sender: LUPIN
  Company Number: US-LUPIN PHARMACEUTICALS INC.-2025-00797

PATIENT

DRUGS (2)
  1. LEVOTHYROXINE SODIUM [Suspect]
     Active Substance: LEVOTHYROXINE SODIUM
     Indication: Product used for unknown indication
     Route: 065
  2. LEVOTHYROXINE SODIUM [Suspect]
     Active Substance: LEVOTHYROXINE SODIUM
     Route: 065

REACTIONS (6)
  - Cerebrovascular accident [Unknown]
  - Blood thyroid stimulating hormone increased [Unknown]
  - Fatigue [Unknown]
  - Visual impairment [Unknown]
  - Recalled product administered [Unknown]
  - Product quality issue [Unknown]

NARRATIVE: CASE EVENT DATE: 20240101
